FAERS Safety Report 5310199-0 (Version None)
Quarter: 2007Q2

REPORT INFORMATION
  Report Type: 
  Country: None (occurrence: None)
  Receive Date: 20070427
  Receipt Date: 20070424
  Transmission Date: 20071010
  Serious: Yes (Other)
  Sender: FDA-Public Use
  Company Number: 2007UW07997

PATIENT
  Sex: Female

DRUGS (2)
  1. ARIMIDEX [Suspect]
     Indication: BREAST CANCER
     Route: 048
  2. CINAMET [Suspect]

REACTIONS (4)
  - CONFUSIONAL STATE [None]
  - HYPERTENSION [None]
  - MEMORY IMPAIRMENT [None]
  - PARKINSON'S DISEASE [None]
